FAERS Safety Report 6461923-5 (Version None)
Quarter: 2009Q4

REPORT INFORMATION
  Report Type: 
  Country: None (occurrence: None)
  Receive Date: 20091130
  Receipt Date: 20091125
  Transmission Date: 20100525
  Serious: Yes (Other)
  Sender: FDA-Public Use
  Company Number: PHHY2009CR52105

PATIENT
  Age: 49 Year
  Sex: Female

DRUGS (1)
  1. VOLTAREN [Suspect]
     Indication: ARTHRALGIA
     Dosage: 1 DF, ONCE/SINGLE
     Route: 030

REACTIONS (4)
  - ABSCESS DRAINAGE [None]
  - INJECTION SITE ABSCESS [None]
  - INJECTION SITE MASS [None]
  - OPEN WOUND [None]
